FAERS Safety Report 9021988 (Version 3)
Quarter: 2013Q1

REPORT INFORMATION
  Report Type: Spontaneous
  Country: FR (occurrence: FR)
  Receive Date: 20130118
  Receipt Date: 20130322
  Transmission Date: 20140127
  Serious: Yes (Life-Threatening, Hospitalization)
  Sender: FDA-Public Use
  Company Number: PHHY2013FR004443

PATIENT
  Sex: Female

DRUGS (7)
  1. RASILEZ [Suspect]
     Dosage: (SEVERAL DOSES)
     Route: 048
     Dates: start: 20130112, end: 20130112
  2. PARACETAMOL SANDOZ [Suspect]
     Route: 048
  3. MODURETIC [Suspect]
     Indication: HYPERTENSION
     Route: 048
     Dates: start: 20130112, end: 20130112
  4. ISOPTINE [Suspect]
     Route: 048
     Dates: start: 20130112, end: 20130112
  5. SECTRAL [Suspect]
     Route: 048
  6. AERIUS [Suspect]
     Indication: ASTHMA
     Route: 048
     Dates: start: 20130112, end: 20130112
  7. COVERSYL [Suspect]
     Indication: HYPERTENSION
     Route: 048

REACTIONS (4)
  - Cardiogenic shock [Recovered/Resolved]
  - Hepatocellular injury [Recovering/Resolving]
  - Suicide attempt [Unknown]
  - Hypotension [Recovered/Resolved]
